FAERS Safety Report 6418061-7 (Version None)
Quarter: 2009Q4

REPORT INFORMATION
  Report Type: 
  Country: None (occurrence: None)
  Receive Date: 20091026
  Receipt Date: 20091013
  Transmission Date: 20100525
  Serious: Yes (Other)
  Sender: FDA-Public Use
  Company Number: ADR38012009

PATIENT
  Age: 54 Year
  Sex: Male

DRUGS (2)
  1. SIMVASTATIN [Suspect]
     Indication: BLOOD CHOLESTEROL INCREASED
     Dosage: 20 MG, ORAL
     Route: 048
  2. THYROXINE (25 MCG) [Concomitant]

REACTIONS (2)
  - COMPARTMENT SYNDROME [None]
  - MUSCLE NECROSIS [None]
